APPROVED DRUG PRODUCT: PREMARIN
Active Ingredient: ESTROGENS, CONJUGATED
Strength: 0.625MG
Dosage Form/Route: TABLET;ORAL
Application: N004782 | Product #004 | TE Code: AB
Applicant: WYETH PHARMACEUTICALS LLC
Approved: Approved Prior to Jan 1, 1982 | RLD: Yes | RS: Yes | Type: RX